FAERS Safety Report 5956329-9 (Version None)
Quarter: 2008Q4

REPORT INFORMATION
  Report Type: 
  Country: None (occurrence: None)
  Receive Date: 20081118
  Receipt Date: 20081112
  Transmission Date: 20090506
  Serious: Yes (Death)
  Sender: FDA-Public Use
  Company Number: PHHY2008CR28120

PATIENT
  Age: 58 Year
  Sex: Female

DRUGS (1)
  1. DIOVAN HCT [Suspect]
     Indication: HYPERTENSION
     Dosage: 320 MG VALSARTAN/25 MG HYDROCHLOROTHIAZIDE
     Route: 048

REACTIONS (2)
  - CARDIO-RESPIRATORY ARREST [None]
  - CHEST X-RAY ABNORMAL [None]
